FAERS Safety Report 18176363 (Version 5)
Quarter: 2021Q3

REPORT INFORMATION
  Report Type: Report from Study
  Country: US (occurrence: US)
  Receive Date: 20200820
  Receipt Date: 20210921
  Transmission Date: 20211014
  Serious: Yes (Other)
  Sender: FDA-Public Use
  Company Number: US-SHIRE-US202025408

PATIENT
  Age: 43 Year
  Sex: Female
  Weight: 113 kg

DRUGS (24)
  1. DIPHENHYDRAMINE. [Concomitant]
     Active Substance: DIPHENHYDRAMINE
     Route: 065
  2. DYMISTA [Concomitant]
     Active Substance: AZELASTINE HYDROCHLORIDE\FLUTICASONE PROPIONATE
     Route: 065
  3. MONTELUKAST [Concomitant]
     Active Substance: MONTELUKAST SODIUM
     Route: 065
  4. HYDRATED [Concomitant]
     Indication: PREMEDICATION
     Route: 065
  5. ALAVERT ALLERGY [Concomitant]
     Active Substance: LORATADINE
     Route: 065
  6. IMMUNE SUPPORT [Concomitant]
     Route: 065
  7. EPINEPHRINE. [Concomitant]
     Active Substance: EPINEPHRINE
     Route: 065
  8. DICYCLOMINE [Concomitant]
     Active Substance: DICYCLOMINE HYDROCHLORIDE
     Route: 065
  9. HCTZ [Concomitant]
     Active Substance: HYDROCHLOROTHIAZIDE
     Route: 065
  10. NEXIUM [Concomitant]
     Active Substance: ESOMEPRAZOLE MAGNESIUM
     Route: 065
  11. GABAPENTIN. [Concomitant]
     Active Substance: GABAPENTIN
     Route: 065
  12. ACETAMINOPHEN. [Concomitant]
     Active Substance: ACETAMINOPHEN
     Route: 065
  13. YAZ [Concomitant]
     Active Substance: DROSPIRENONE\ETHINYL ESTRADIOL
     Route: 065
  14. PROAIR HFA [Concomitant]
     Active Substance: ALBUTEROL SULFATE
     Route: 065
  15. METOPROLOL TARTRATE. [Concomitant]
     Active Substance: METOPROLOL TARTRATE
  16. CUVITRU [Suspect]
     Active Substance: HUMAN IMMUNOGLOBULIN G
     Indication: PRIMARY IMMUNODEFICIENCY SYNDROME
  17. LMX4 [Concomitant]
     Active Substance: LIDOCAINE
     Route: 065
  18. SYMBICORT [Concomitant]
     Active Substance: BUDESONIDE\FORMOTEROL FUMARATE DIHYDRATE
     Route: 065
  19. OTEZLA [Concomitant]
     Active Substance: APREMILAST
     Route: 065
  20. CUVITRU [Suspect]
     Active Substance: HUMAN IMMUNOGLOBULIN G
     Indication: PRODUCT USED FOR UNKNOWN INDICATION
  21. VALSARTAN. [Concomitant]
     Active Substance: VALSARTAN
     Route: 065
  22. DAYPRO [Concomitant]
     Active Substance: OXAPROZIN
     Route: 065
  23. CUVITRU [Suspect]
     Active Substance: HUMAN IMMUNOGLOBULIN G
     Indication: SELECTIVE IGG SUBCLASS DEFICIENCY
     Dosage: 15 GRAM, 1X/WEEK
     Route: 058
     Dates: start: 20200724
  24. BENADRYL [Concomitant]
     Active Substance: DIPHENHYDRAMINE HYDROCHLORIDE
     Indication: PREMEDICATION
     Route: 065

REACTIONS (16)
  - Allergy to vaccine [Unknown]
  - Nausea [Unknown]
  - Vomiting [Unknown]
  - Dermatitis contact [Unknown]
  - Adverse food reaction [Unknown]
  - Application site warmth [Unknown]
  - Infusion site erythema [Unknown]
  - Anxiety [Unknown]
  - Sinusitis [Unknown]
  - Kidney infection [Unknown]
  - Headache [Unknown]
  - Blood pressure increased [Unknown]
  - Fatigue [Unknown]
  - White blood cell count increased [Unknown]
  - Blood urine present [Unknown]
  - Autoimmune disorder [Unknown]

NARRATIVE: CASE EVENT DATE: 20201123
